FAERS Safety Report 4298654-6 (Version None)
Quarter: 2004Q1

REPORT INFORMATION
  Report Type: 
  Country: None (occurrence: None)
  Receive Date: 20040218
  Receipt Date: 20030702
  Transmission Date: 20041129
  Serious: No
  Sender: FDA-Public Use
  Company Number: US-GLAXOSMITHKLINE-A0415151A

PATIENT
  Age: 35 Year
  Sex: Female

DRUGS (1)
  1. PAXIL [Suspect]
     Indication: PANIC ATTACK
     Route: 048

REACTIONS (4)
  - GALACTORRHOEA [None]
  - HEADACHE [None]
  - HYPERTROPHY BREAST [None]
  - WEIGHT INCREASED [None]
